FAERS Safety Report 9276446 (Version 1)
Quarter: 2013Q2

REPORT INFORMATION
  Report Type: Spontaneous
  Country: AT (occurrence: AT)
  Receive Date: 20130507
  Receipt Date: 20130507
  Transmission Date: 20140414
  Serious: Yes (Life-Threatening, Hospitalization)
  Sender: FDA-Public Use
  Company Number: AT-ASTRAZENECA-2013SE31094

PATIENT
  Age: 36 Year
  Sex: Female

DRUGS (2)
  1. SEROQUEL XR [Suspect]
     Indication: SUICIDAL IDEATION
     Dosage: 60 PIECES OF 400 MG
     Route: 048
     Dates: start: 20120622, end: 20120622
  2. ALCOHOL [Suspect]
     Indication: SUICIDAL IDEATION
     Route: 065
     Dates: start: 20120622, end: 20120622

REACTIONS (8)
  - Intentional overdose [Recovered/Resolved]
  - Suicidal ideation [Unknown]
  - Toxicity to various agents [Recovered/Resolved]
  - Anticholinergic syndrome [Recovered/Resolved]
  - Coma [Recovered/Resolved]
  - Hypotension [Recovered/Resolved]
  - Sinus tachycardia [Recovered/Resolved]
  - Somnolence [Recovered/Resolved]
